FAERS Safety Report 23517878 (Version 1)
Quarter: 2024Q1

REPORT INFORMATION
  Report Type: Spontaneous
  Country: US (occurrence: US)
  Receive Date: 20240213
  Receipt Date: 20240213
  Transmission Date: 20240410
  Serious: Yes (Hospitalization)
  Sender: FDA-Public Use
  Company Number: US-AMGEN-USASP2024026748

PATIENT
  Age: 72 Year
  Sex: Male

DRUGS (4)
  1. RITUXIMAB [Suspect]
     Active Substance: RITUXIMAB
     Indication: Diffuse large B-cell lymphoma
     Dosage: UNK (8 CYCLES)
     Route: 065
  2. METHOTREXATE [Concomitant]
     Active Substance: METHOTREXATE
     Dosage: UNK (HIGH-DOSE)
     Route: 065
  3. PROCARBAZINE [Concomitant]
     Active Substance: PROCARBAZINE
     Dosage: UNK
     Route: 065
  4. SALINE [Concomitant]
     Active Substance: SODIUM CHLORIDE
     Dosage: UNK (5-10 ML)

REACTIONS (5)
  - Diffuse large B-cell lymphoma [Unknown]
  - Metastases to central nervous system [Unknown]
  - Metastases to meninges [Unknown]
  - Gallbladder disorder [Unknown]
  - Hepatotoxicity [Unknown]
